FAERS Safety Report 8169453-X (Version None)
Quarter: 2012Q1

REPORT INFORMATION
  Report Type: 
  Country: None (occurrence: None)
  Receive Date: 20120222
  Receipt Date: 20120210
  Transmission Date: 20120608
  Serious: Yes (Hospitalization)
  Sender: FDA-Public Use
  Company Number: DEP_00570_2012

PATIENT
  Age: 57 Year
  Sex: Male

DRUGS (10)
  1. ASPIRIN [Concomitant]
  2. DILTIAZEM HCL [Concomitant]
  3. SEVELAMER [Concomitant]
  4. LANTUS [Concomitant]
  5. FERROUS SULFATE TAB [Concomitant]
  6. TAMSULOSIN HCL [Concomitant]
  7. FINASTERIDE [Concomitant]
  8. GABAPENTIN [Suspect]
     Indication: PRODUCT USED FOR UNKNOWN INDICATION
     Dosage: (900 MG, 900 MG)
  9. DOCUSATE [Concomitant]
  10. LACTULOSE [Concomitant]

REACTIONS (10)
  - RENAL FAILURE ACUTE [None]
  - BLOOD GLUCOSE DECREASED [None]
  - TOXICITY TO VARIOUS AGENTS [None]
  - HAEMODIALYSIS [None]
  - ALTERED STATE OF CONSCIOUSNESS [None]
  - MUSCLE TWITCHING [None]
  - BLOOD ELECTROLYTES ABNORMAL [None]
  - BLOOD GLUCOSE INCREASED [None]
  - PAIN IN EXTREMITY [None]
  - RENAL TUBULAR NECROSIS [None]
